FAERS Safety Report 16696359 (Version 1)
Quarter: 2019Q3

REPORT INFORMATION
  Report Type: Spontaneous
  Country: JP (occurrence: JP)
  Receive Date: 20190813
  Receipt Date: 20190813
  Transmission Date: 20191004
  Serious: Yes (Other)
  Sender: FDA-Public Use
  Company Number: JP-PBT-000046

PATIENT
  Age: 8 Month

DRUGS (3)
  1. PREDNISOLONE. [Suspect]
     Active Substance: PREDNISOLONE
     Indication: OCULAR MYASTHENIA
     Dosage: EVERY OTHER DAY
     Route: 065
  2. TACROLIMUS. [Suspect]
     Active Substance: TACROLIMUS
     Indication: OCULAR MYASTHENIA
     Route: 065
  3. PREDNISOLONE. [Suspect]
     Active Substance: PREDNISOLONE
     Indication: OCULAR MYASTHENIA
     Dosage: EVERY OTHER DAY
     Route: 065

REACTIONS (3)
  - Product use in unapproved indication [Unknown]
  - Ocular myasthenia [Unknown]
  - Disease recurrence [Unknown]
